FAERS Safety Report 25718946 (Version 1)
Quarter: 2025Q3

REPORT INFORMATION
  Report Type: Spontaneous
  Country: US (occurrence: US)
  Receive Date: 20250823
  Receipt Date: 20250823
  Transmission Date: 20251021
  Serious: Yes (Hospitalization, Other)
  Sender: AUROBINDO
  Company Number: US-MLMSERVICE-20250804-PI602711-00252-1

PATIENT
  Age: 56 Year
  Sex: Male

DRUGS (2)
  1. OXYCODONE [Suspect]
     Active Substance: OXYCODONE
     Indication: Musculoskeletal chest pain
     Route: 065
  2. PREDNISONE [Concomitant]
     Active Substance: PREDNISONE
     Indication: Musculoskeletal chest pain
     Route: 065

REACTIONS (4)
  - Pneumonia lipoid [Unknown]
  - Pneumonia aspiration [Unknown]
  - Aspiration [Unknown]
  - Atelectasis [Unknown]
